FAERS Safety Report 10168641 (Version 1)
Quarter: 2014Q2

REPORT INFORMATION
  Report Type: Other
  Country: FR (occurrence: FR)
  Receive Date: 20140513
  Receipt Date: 20140513
  Transmission Date: 20141212
  Serious: Yes (Other)
  Sender: FDA-Public Use
  Company Number: FR-BRISTOL-MYERS SQUIBB COMPANY-20727186

PATIENT
  Sex: 0

DRUGS (1)
  1. EFAVIRENZ [Suspect]

REACTIONS (2)
  - Cerebral cyst [Unknown]
  - Foetal exposure during pregnancy [Unknown]
